FAERS Safety Report 22635750 (Version 1)
Quarter: 2023Q2

REPORT INFORMATION
  Report Type: Spontaneous
  Country: DE (occurrence: DE)
  Receive Date: 20230623
  Receipt Date: 20230623
  Transmission Date: 20230721
  Serious: Yes (Death, Other)
  Sender: FDA-Public Use
  Company Number: DE-002147023-NVSC2023DE136470

PATIENT

DRUGS (15)
  1. CARBOPLATIN [Suspect]
     Active Substance: CARBOPLATIN
     Indication: Adenocarcinoma
     Dosage: UNK
     Route: 065
     Dates: start: 201906, end: 201909
  2. CARBOPLATIN [Suspect]
     Active Substance: CARBOPLATIN
     Indication: Pleural neoplasm
  3. CARBOPLATIN [Suspect]
     Active Substance: CARBOPLATIN
     Indication: Lymphangiosis carcinomatosa
  4. CARBOPLATIN [Suspect]
     Active Substance: CARBOPLATIN
     Indication: Bronchial carcinoma
  5. CARBOPLATIN [Suspect]
     Active Substance: CARBOPLATIN
     Indication: Malignant peritoneal neoplasm
  6. PEMETREXED [Suspect]
     Active Substance: PEMETREXED
     Indication: Lymphangiosis carcinomatosa
     Dosage: UNK
     Route: 065
     Dates: start: 201906, end: 202003
  7. PEMETREXED [Suspect]
     Active Substance: PEMETREXED
     Indication: Bronchial carcinoma
  8. PEMETREXED [Suspect]
     Active Substance: PEMETREXED
     Indication: Malignant peritoneal neoplasm
  9. PEMETREXED [Suspect]
     Active Substance: PEMETREXED
     Indication: Adenocarcinoma
  10. PEMETREXED [Suspect]
     Active Substance: PEMETREXED
     Indication: Pleural neoplasm
  11. PEMBROLIZUMAB [Suspect]
     Active Substance: PEMBROLIZUMAB
     Indication: Malignant peritoneal neoplasm
     Dosage: UNK
     Route: 065
     Dates: start: 201906, end: 2021
  12. PEMBROLIZUMAB [Suspect]
     Active Substance: PEMBROLIZUMAB
     Indication: Lymphangiosis carcinomatosa
  13. PEMBROLIZUMAB [Suspect]
     Active Substance: PEMBROLIZUMAB
     Indication: Pleural neoplasm
  14. PEMBROLIZUMAB [Suspect]
     Active Substance: PEMBROLIZUMAB
     Indication: Adenocarcinoma
  15. PEMBROLIZUMAB [Suspect]
     Active Substance: PEMBROLIZUMAB
     Indication: Bronchial carcinoma

REACTIONS (9)
  - Death [Fatal]
  - Malignant neoplasm progression [None]
  - Bronchial carcinoma [None]
  - Adenocarcinoma [None]
  - Pneumonia [None]
  - Product use in unapproved indication [None]
  - Pleural effusion [None]
  - Drug resistance mutation [None]
  - Carpal tunnel syndrome [None]

NARRATIVE: CASE EVENT DATE: 20190601
